FAERS Safety Report 4778598-3 (Version None)
Quarter: 2005Q3

REPORT INFORMATION
  Report Type: 
  Country: None (occurrence: None)
  Receive Date: 20050926
  Receipt Date: 20050914
  Transmission Date: 20060218
  Serious: Yes (Other)
  Sender: FDA-Public Use
  Company Number: 2005AP04919

PATIENT
  Age: 73 Year
  Sex: Female

DRUGS (3)
  1. TAMOXIFEN CITRATE [Suspect]
     Indication: BREAST CANCER
     Route: 048
  2. MEDROXYPROGESTERONE ACETATE [Concomitant]
     Indication: BREAST CANCER
     Route: 048
     Dates: end: 20040301
  3. DOCETAXEL [Concomitant]
     Dosage: 6 COURSES

REACTIONS (3)
  - CARDIAC FAILURE [None]
  - CEREBRAL INFARCTION [None]
  - LYMPHADENOPATHY [None]
